FAERS Safety Report 15241629 (Version 2)
Quarter: 2018Q3

REPORT INFORMATION
  Report Type: Report from Study
  Country: US (occurrence: US)
  Receive Date: 20180805
  Receipt Date: 20180921
  Transmission Date: 20181010
  Serious: Yes (Death, Hospitalization)
  Sender: FDA-Public Use
  Company Number: PHEH2018US031348

PATIENT
  Age: 74 Year
  Sex: Female
  Weight: 55 kg

DRUGS (1)
  1. AFINITOR [Suspect]
     Active Substance: EVEROLIMUS
     Indication: CARCINOID TUMOUR
     Dosage: 10 MG, QD
     Route: 048
     Dates: start: 20180709

REACTIONS (6)
  - Oxygen saturation decreased [Unknown]
  - Dyspnoea [Unknown]
  - Hypoxia [Unknown]
  - Malignant neoplasm progression [Fatal]
  - Metastases to liver [Fatal]
  - Mediastinal mass [Fatal]

NARRATIVE: CASE EVENT DATE: 20180704
